FAERS Safety Report 20216084 (Version 1)
Quarter: 2021Q4

REPORT INFORMATION
  Report Type: Spontaneous
  Country: JP (occurrence: JP)
  Receive Date: 20211222
  Receipt Date: 20211222
  Transmission Date: 20220303
  Serious: Yes (Hospitalization, Other)
  Sender: FDA-Public Use
  Company Number: JP-MLMSERVICE-20211207-3258929-1

PATIENT
  Age: 68 Year
  Sex: Male

DRUGS (4)
  1. LEVETIRACETAM [Suspect]
     Active Substance: LEVETIRACETAM
     Indication: Epilepsy
     Route: 048
     Dates: start: 2018
  2. WARFARIN [Concomitant]
     Active Substance: WARFARIN
  3. VALPROIC ACID [Concomitant]
     Active Substance: VALPROIC ACID
     Indication: Epilepsy
     Dates: start: 2018
  4. DIAZEPAM [Concomitant]
     Active Substance: DIAZEPAM
     Indication: Seizure
     Dosage: AT NIGHT
     Route: 054

REACTIONS (6)
  - Dehydration [Recovered/Resolved]
  - Somnolence [Unknown]
  - Decreased appetite [Unknown]
  - Hypophagia [Unknown]
  - Drug level increased [Recovering/Resolving]
  - Anger [Unknown]

NARRATIVE: CASE EVENT DATE: 20180101
